FAERS Safety Report 17540568 (Version 1)
Quarter: 2020Q1

REPORT INFORMATION
  Report Type: Spontaneous
  Country: US (occurrence: US)
  Receive Date: 20200313
  Receipt Date: 20200313
  Transmission Date: 20200409
  Serious: Yes (Other)
  Sender: FDA-Public Use
  Company Number: US-BAYER-2020-044266

PATIENT
  Age: 67 Year
  Sex: Male

DRUGS (2)
  1. XOFIGO [Suspect]
     Active Substance: RADIUM RA-223 DICHLORIDE
     Indication: PROSTATE CANCER
     Dosage: 145 MICROCURIE
     Route: 042
     Dates: start: 20200204, end: 20200204
  2. OTEZLA [Concomitant]
     Active Substance: APREMILAST
     Indication: PSORIASIS
     Dosage: UNK
     Dates: start: 20191001

REACTIONS (1)
  - Cytomegalovirus colitis [Recovering/Resolving]

NARRATIVE: CASE EVENT DATE: 20200305
